FAERS Safety Report 4657174-7 (Version None)
Quarter: 2005Q3

REPORT INFORMATION
  Report Type: 
  Country: None (occurrence: None)
  Receive Date: 20050506
  Receipt Date: 20050428
  Transmission Date: 20060218
  Serious: Yes (Hospitalization)
  Sender: FDA-Public Use
  Company Number: S05-USA-00972-01

PATIENT
  Age: 16 Year
  Sex: Female
  Weight: 77.5651 kg

DRUGS (5)
  1. LEXAPRO [Suspect]
     Indication: MAJOR DEPRESSION
     Dosage: 220 MG QD PO
     Route: 048
     Dates: start: 20050214, end: 20050214
  2. LEXAPRO [Suspect]
     Indication: MAJOR DEPRESSION
     Dosage: 10 MG QD PO
     Route: 048
     Dates: start: 20050128, end: 20050318
  3. BARBITURATES [Concomitant]
  4. AMPHETAMINES [Suspect]
  5. ALBUTEROL [Concomitant]

REACTIONS (17)
  - AMPHETAMINES [None]
  - BARBITURATES [None]
  - DIZZINESS [None]
  - DRUG EXPOSURE DURING PREGNANCY [None]
  - EUPHORIC MOOD [None]
  - FAMILY STRESS [None]
  - FATIGUE [None]
  - INTENTIONAL MISUSE [None]
  - MATERNAL USE OF ILLICIT DRUGS [None]
  - NAUSEA [None]
  - PALPITATIONS [None]
  - PHARYNGITIS STREPTOCOCCAL [None]
  - PREGNANCY WITH INJECTABLE CONTRACEPTIVE [None]
  - SUICIDE ATTEMPT [None]
  - TREATMENT NONCOMPLIANCE [None]
  - TREMOR [None]
  - VAGINAL INFECTION [None]
